FAERS Safety Report 12668392 (Version 2)
Quarter: 2016Q3

REPORT INFORMATION
  Report Type: Spontaneous
  Country: US (occurrence: US)
  Receive Date: 20160819
  Receipt Date: 20160913
  Transmission Date: 20161109
  Serious: Yes (Life-Threatening, Hospitalization, Other)
  Sender: FDA-Public Use
  Company Number: US-009507513-1608USA009012

PATIENT
  Age: 72 Year
  Sex: Male
  Weight: 81.6 kg

DRUGS (4)
  1. ZOMETA [Concomitant]
     Active Substance: ZOLEDRONIC ACID
     Indication: PLASMA CELL MYELOMA
     Dosage: 3.5 UNK, EVERY 3 - 4 WEEKS
     Route: 040
     Dates: start: 20160601, end: 201608
  2. DARZALEX [Concomitant]
     Active Substance: DARATUMUMAB
     Indication: PLASMA CELL MYELOMA
     Dosage: 1300 UNK, QW
     Route: 040
     Dates: start: 20160613, end: 201607
  3. DEXAMETHASONE. [Suspect]
     Active Substance: DEXAMETHASONE
     Indication: PLASMA CELL MYELOMA
     Dosage: 20 MG, QW
     Route: 048
     Dates: start: 20160612, end: 201607
  4. VELCADE [Concomitant]
     Active Substance: BORTEZOMIB
     Indication: PLASMA CELL MYELOMA
     Dosage: 2.7 MG, CYCLICAL (DAYS 1,4,8,11 EVERY 21 DAYS)
     Route: 040
     Dates: start: 20160612, end: 201608

REACTIONS (3)
  - Hypotension [Unknown]
  - Pneumonia [Not Recovered/Not Resolved]
  - Metabolic function test abnormal [Unknown]

NARRATIVE: CASE EVENT DATE: 20160617
